FAERS Safety Report 11193465 (Version 2)
Quarter: 2015Q3

REPORT INFORMATION
  Report Type: Report from Study
  Country: RO (occurrence: RO)
  Receive Date: 20150616
  Receipt Date: 20150804
  Transmission Date: 20151125
  Serious: Yes (Other)
  Sender: FDA-Public Use
  Company Number: RO-ABBVIE-15P-135-1408442-00

PATIENT
  Age: 66 Year
  Sex: Female

DRUGS (2)
  1. DUODOPA [Suspect]
     Active Substance: CARBIDOPA\LEVODOPA
     Indication: PARKINSON^S DISEASE
     Dosage: 16/24, MD 8 ML, CR 3.5 ML/H, ED 1.5 ML
     Route: 050
     Dates: start: 20150123
  2. ELIQUIS [Concomitant]
     Active Substance: APIXABAN
     Indication: DEEP VEIN THROMBOSIS
     Dosage: FIRST WEEK 2/DAY; SECOND WEEK 1/DAY

REACTIONS (10)
  - Sleep disorder [Recovering/Resolving]
  - Irritability [Recovering/Resolving]
  - Fatigue [Recovering/Resolving]
  - Memory impairment [Recovering/Resolving]
  - Psychiatric symptom [Recovering/Resolving]
  - Disturbance in attention [Recovering/Resolving]
  - Depressed mood [Recovering/Resolving]
  - Change of bowel habit [Recovering/Resolving]
  - Depression [Recovering/Resolving]
  - Anxiety [Recovering/Resolving]

NARRATIVE: CASE EVENT DATE: 20150610
